FAERS Safety Report 16943330 (Version 2)
Quarter: 2019Q4

REPORT INFORMATION
  Report Type: Spontaneous
  Country: BR (occurrence: BR)
  Receive Date: 20191022
  Receipt Date: 20191024
  Transmission Date: 20200122
  Serious: Yes (Death)
  Sender: FDA-Public Use
  Company Number: BR-B.I. PHARMACEUTICALS,INC./RIDGEFIELD-2019-BI-108986

PATIENT
  Sex: Male
  Weight: 80 kg

DRUGS (3)
  1. SPIRIVA RESPIMAT [Suspect]
     Active Substance: TIOTROPIUM BROMIDE
     Indication: ASTHMA
     Route: 048
     Dates: start: 201004, end: 20180917
  2. AEROGOLD [Concomitant]
     Indication: ASTHMA
     Route: 065
     Dates: start: 2013
  3. SERETIDE [Concomitant]
     Active Substance: FLUTICASONE PROPIONATE\SALMETEROL XINAFOATE
     Indication: ASTHMA
     Route: 065
     Dates: start: 2013

REACTIONS (3)
  - Malignant neoplasm progression [Fatal]
  - Chronic obstructive pulmonary disease [Fatal]
  - Constipation [Unknown]
